FAERS Safety Report 9725477 (Version 1)
Quarter: 2013Q4

REPORT INFORMATION
  Report Type: Spontaneous
  Country: US (occurrence: None)
  Receive Date: 20131127
  Receipt Date: 20131127
  Transmission Date: 20140711
  Serious: Yes (Other)
  Sender: FDA-Public Use
  Company Number: A1050586A

PATIENT
  Age: 31 Year
  Sex: Male

DRUGS (1)
  1. STANNOUS FLUORIDE [Suspect]
     Indication: SENSITIVITY OF TEETH
     Dosage: UNK / UNK / DENTAL
     Dates: start: 20131109, end: 20131119

REACTIONS (6)
  - Gingival bleeding [None]
  - Gingival inflammation [None]
  - Stomatitis [None]
  - Mouth ulceration [None]
  - Oral discomfort [None]
  - Gingival erythema [None]
